FAERS Safety Report 19190573 (Version 1)
Quarter: 2021Q2

REPORT INFORMATION
  Report Type: Spontaneous
  Country: JP (occurrence: JP)
  Receive Date: 20210428
  Receipt Date: 20210428
  Transmission Date: 20210717
  Serious: Yes (Other)
  Sender: FDA-Public Use
  Company Number: JP-BAYER-2021-128120

PATIENT
  Sex: Female

DRUGS (1)
  1. MIRENA [Suspect]
     Active Substance: LEVONORGESTREL
     Indication: DYSMENORRHOEA
     Dosage: 20?G PER DAY, CONTINUOUSLY
     Route: 015
     Dates: start: 202001, end: 202103

REACTIONS (5)
  - Heavy menstrual bleeding [None]
  - Vaginal discharge [None]
  - Uterine myoma expulsion [None]
  - Intermenstrual bleeding [None]
  - Intermenstrual bleeding [None]

NARRATIVE: CASE EVENT DATE: 202102
